FAERS Safety Report 5912709-9 (Version None)
Quarter: 2008Q4

REPORT INFORMATION
  Report Type: 
  Country: None (occurrence: None)
  Receive Date: 20081008
  Receipt Date: 20080929
  Transmission Date: 20090506
  Serious: No
  Sender: FDA-Public Use
  Company Number: DE-B.I. PHARMACEUTICALS,INC./RIDGEFIELD-2008-DE-05589DE

PATIENT
  Sex: Female
  Weight: 12 kg

DRUGS (1)
  1. SIFROL 0,7 MG [Suspect]
     Dosage: .7MG
     Route: 048

REACTIONS (2)
  - MEDICATION ERROR [None]
  - VOMITING [None]
